FAERS Safety Report 17463889 (Version 1)
Quarter: 2020Q1

REPORT INFORMATION
  Report Type: Report from Study
  Country: IN (occurrence: IN)
  Receive Date: 20200226
  Receipt Date: 20200226
  Transmission Date: 20200409
  Serious: Yes (Other)
  Sender: FDA-Public Use
  Company Number: IN-MYLANLABS-2020M1019539

PATIENT

DRUGS (1)
  1. EFAVIRENZ,LAMIVUDINE,TENOFOVIR MYLAN [Suspect]
     Active Substance: EFAVIRENZ\LAMIVUDINE\TENOFOVIR DISOPROXIL FUMARATE
     Indication: PROPHYLAXIS AGAINST HIV INFECTION
     Route: 064

REACTIONS (2)
  - Drug ineffective [Unknown]
  - Foetal exposure during pregnancy [Recovered/Resolved]
